FAERS Safety Report 8009316-3 (Version None)
Quarter: 2011Q4

REPORT INFORMATION
  Report Type: 
  Country: None (occurrence: None)
  Receive Date: 20111227
  Receipt Date: 20111220
  Transmission Date: 20120403
  Serious: Yes (Other)
  Sender: FDA-Public Use
  Company Number: PHHY2011CN110786

PATIENT
  Age: 76 Year
  Sex: Male

DRUGS (3)
  1. HEPARIN [Suspect]
     Dosage: 6150 U, UNK
  2. CLOPIDOGREL [Suspect]
     Indication: ANTIPLATELET THERAPY
     Dosage: 75 MG, QD
  3. ACETYLSALICYLIC ACID SRT [Suspect]
     Indication: ANTIPLATELET THERAPY
     Dosage: 100 MG, QD

REACTIONS (4)
  - CONTUSION [None]
  - OEDEMA PERIPHERAL [None]
  - SPONTANEOUS HAEMATOMA [None]
  - PAIN IN EXTREMITY [None]
